FAERS Safety Report 9290235 (Version 1)
Quarter: 2013Q2

REPORT INFORMATION
  Report Type: Spontaneous
  Country: BR (occurrence: BR)
  Receive Date: 20130515
  Receipt Date: 20130515
  Transmission Date: 20140414
  Serious: Yes (Death)
  Sender: FDA-Public Use
  Company Number: BR-BRISTOL-MYERS SQUIBB COMPANY-18881607

PATIENT
  Age: 76 Year
  Sex: Female

DRUGS (5)
  1. ONGLYZA TABS 5 MG [Suspect]
     Indication: METABOLIC DISORDER
     Route: 048
  2. GLIFAGE XR [Concomitant]
     Indication: METABOLIC DISORDER
  3. VASOPRIL [Concomitant]
     Indication: METABOLIC DISORDER
  4. LIPITOR [Concomitant]
     Indication: METABOLIC DISORDER
  5. ATENOLOL [Concomitant]
     Indication: METABOLIC DISORDER

REACTIONS (1)
  - Pancreatitis [Fatal]
